FAERS Safety Report 5627100-2 (Version None)
Quarter: 2008Q1

REPORT INFORMATION
  Report Type: 
  Country: None (occurrence: None)
  Receive Date: 20080130
  Receipt Date: 20071009
  Transmission Date: 20080703
  Serious: Yes (Disabling)
  Sender: FDA-Public Use
  Company Number: 2007EN000259

PATIENT
  Age: 40 Year
  Sex: Male
  Weight: 58.9676 kg

DRUGS (4)
  1. OPANA ER [Suspect]
     Indication: PAIN
     Dates: start: 20070901, end: 20070101
  2. LYRICA [Concomitant]
  3. CYMBALTA [Concomitant]
  4. SEROQUEL [Concomitant]

REACTIONS (2)
  - FATIGUE [None]
  - SEDATION [None]
